FAERS Safety Report 17433680 (Version 1)
Quarter: 2020Q1

REPORT INFORMATION
  Report Type: Spontaneous
  Country: PT (occurrence: PT)
  Receive Date: 20200219
  Receipt Date: 20200219
  Transmission Date: 20200409
  Serious: Yes (Life-Threatening, Hospitalization, Other)
  Sender: FDA-Public Use
  Company Number: PT-AMCO LTD-GSH201709-005533

PATIENT

DRUGS (74)
  1. LORATADINE. [Suspect]
     Active Substance: LORATADINE
     Indication: URTICARIA CHRONIC
     Dosage: UNK
     Route: 065
  2. ZYRTEC [Suspect]
     Active Substance: CETIRIZINE HYDROCHLORIDE
     Indication: ASTHMA
     Dosage: UNK
     Route: 065
  3. HYDROCORTISONE. [Suspect]
     Active Substance: HYDROCORTISONE
     Dosage: UNK
     Route: 062
  4. HYDROCORTISONE. [Suspect]
     Active Substance: HYDROCORTISONE
     Dosage: UNK
     Route: 062
  5. METHYLPREDNISOLONE. [Suspect]
     Active Substance: METHYLPREDNISOLONE
     Indication: ASTHMA
     Dosage: UNK
     Route: 062
  6. DEFLAZACORT [Suspect]
     Active Substance: DEFLAZACORT
     Indication: URTICARIA CHRONIC
     Dosage: UNK
     Route: 048
  7. PARACETAMOL [Suspect]
     Active Substance: ACETAMINOPHEN
     Indication: ASTHMA
     Dosage: UNK
     Route: 065
  8. HYDROXYZINE [Suspect]
     Active Substance: HYDROXYZINE HYDROCHLORIDE
     Indication: URTICARIA CHRONIC
     Dosage: UNK
     Route: 065
  9. DEXAMETHASONE. [Suspect]
     Active Substance: DEXAMETHASONE
     Indication: URTICARIA
     Dosage: UNK
     Route: 065
  10. CLARITINE [Suspect]
     Active Substance: LORATADINE
     Indication: ASTHMA
     Dosage: 150 MG
     Route: 048
  11. CLARITINE [Suspect]
     Active Substance: LORATADINE
     Indication: URTICARIA CHRONIC
     Dosage: UNK, ORODISPERSIBLE TABLET
     Route: 048
  12. OMALIZUMAB. [Suspect]
     Active Substance: OMALIZUMAB
     Dosage: 150 MG
     Route: 065
  13. DESLORATADINE. [Suspect]
     Active Substance: DESLORATADINE
     Indication: ASTHMA
     Dosage: UNK
     Route: 048
  14. HYDROCORTISONE. [Suspect]
     Active Substance: HYDROCORTISONE
     Indication: ASTHMA
     Dosage: UNK
     Route: 048
  15. DEFLAZACORT [Suspect]
     Active Substance: DEFLAZACORT
     Dosage: UNK
     Route: 065
  16. IBUPROFEN. [Suspect]
     Active Substance: IBUPROFEN
     Indication: URTICARIA CHRONIC
     Dosage: UNK
     Route: 065
  17. DEXAMETHASONE. [Suspect]
     Active Substance: DEXAMETHASONE
     Dosage: UNK
     Route: 065
  18. MONTELUKAST [Suspect]
     Active Substance: MONTELUKAST SODIUM
     Indication: DRUG PROVOCATION TEST
     Dosage: UNK, DPT
     Route: 048
  19. OMALIZUMAB. [Suspect]
     Active Substance: OMALIZUMAB
     Dosage: UNK
     Route: 065
  20. FLURBIPROFEN. [Suspect]
     Active Substance: FLURBIPROFEN
     Indication: ASTHMA
  21. DESLORATADINE. [Suspect]
     Active Substance: DESLORATADINE
     Indication: URTICARIA CHRONIC
     Dosage: UNK
     Route: 065
  22. DESLORATADINE. [Suspect]
     Active Substance: DESLORATADINE
     Dosage: UNK
     Route: 065
  23. DESLORATADINE. [Suspect]
     Active Substance: DESLORATADINE
     Dosage: UNK, DPT
     Route: 048
  24. ZYRTEC [Suspect]
     Active Substance: CETIRIZINE HYDROCHLORIDE
     Dosage: UNK
     Route: 048
  25. ZYRTEC [Suspect]
     Active Substance: CETIRIZINE HYDROCHLORIDE
     Dosage: 150 MG
     Route: 065
  26. HYDROCORTISONE. [Suspect]
     Active Substance: HYDROCORTISONE
     Dosage: UNK
     Route: 048
  27. METHYLPREDNISOLONE. [Suspect]
     Active Substance: METHYLPREDNISOLONE
     Dosage: UNK
     Route: 065
  28. DEFLAZACORT [Suspect]
     Active Substance: DEFLAZACORT
     Dosage: UNK
  29. HYDROXYZINE [Suspect]
     Active Substance: HYDROXYZINE HYDROCHLORIDE
     Indication: ASTHMA
     Dosage: UNK
     Route: 065
  30. MONTELUKAST [Suspect]
     Active Substance: MONTELUKAST SODIUM
     Dosage: UNK
     Route: 065
  31. OMALIZUMAB. [Suspect]
     Active Substance: OMALIZUMAB
     Indication: ASTHMA
     Dosage: 300 MG
     Route: 065
  32. OMALIZUMAB. [Suspect]
     Active Substance: OMALIZUMAB
     Dosage: 150 MG
     Route: 065
  33. LORATADINE. [Suspect]
     Active Substance: LORATADINE
     Dosage: UNK
     Route: 065
  34. ZYRTEC [Suspect]
     Active Substance: CETIRIZINE HYDROCHLORIDE
     Indication: URTICARIA CHRONIC
     Dosage: UNK
     Route: 048
  35. METHYLPREDNISOLONE. [Suspect]
     Active Substance: METHYLPREDNISOLONE
     Indication: URTICARIA CHRONIC
     Dosage: UNK
     Route: 065
  36. CLARITINE [Suspect]
     Active Substance: LORATADINE
     Dosage: UNK
     Route: 048
  37. DESLORATADINE. [Suspect]
     Active Substance: DESLORATADINE
     Indication: DRUG PROVOCATION TEST
     Dosage: UNK, DPT
     Route: 048
  38. ZYRTEC [Suspect]
     Active Substance: CETIRIZINE HYDROCHLORIDE
     Dosage: 150 MG
     Route: 065
  39. DEFLAZACORT [Suspect]
     Active Substance: DEFLAZACORT
     Dosage: UNK
     Route: 062
  40. IBUPROFEN. [Suspect]
     Active Substance: IBUPROFEN
     Indication: ASTHMA
     Dosage: UNK
     Route: 065
  41. MONTELUKAST [Suspect]
     Active Substance: MONTELUKAST SODIUM
     Indication: URTICARIA CHRONIC
     Dosage: UNK, DPT
     Route: 048
  42. CLARITINE [Suspect]
     Active Substance: LORATADINE
     Dosage: UNK
     Route: 048
  43. CLARITINE [Suspect]
     Active Substance: LORATADINE
     Dosage: UNK
  44. ACETAMINOPHEN. [Suspect]
     Active Substance: ACETAMINOPHEN
     Indication: ASTHMA
     Dosage: UNK
  45. ZYRTEC [Suspect]
     Active Substance: CETIRIZINE HYDROCHLORIDE
     Dosage: UNK
     Route: 065
  46. HYDROCORTISONE. [Suspect]
     Active Substance: HYDROCORTISONE
     Dosage: UNK
     Route: 062
  47. DEXAMETHASONE. [Suspect]
     Active Substance: DEXAMETHASONE
     Dosage: UNK
     Route: 065
  48. EBASTINE [Suspect]
     Active Substance: EBASTINE
     Indication: ASTHMA
     Dosage: UNK
     Route: 065
  49. CLEMASTINE [Suspect]
     Active Substance: CLEMASTINE
     Indication: ASTHMA
     Dosage: UNK
     Route: 065
  50. CLARITINE [Suspect]
     Active Substance: LORATADINE
     Dosage: UNK
     Route: 048
  51. OMALIZUMAB. [Suspect]
     Active Substance: OMALIZUMAB
     Indication: URTICARIA CHRONIC
     Dosage: 300 MG
     Route: 065
  52. FLURBIPROFEN. [Suspect]
     Active Substance: FLURBIPROFEN
     Indication: URTICARIA CHRONIC
     Dosage: UNK
  53. ZYRTEC [Suspect]
     Active Substance: CETIRIZINE HYDROCHLORIDE
     Dosage: UNK
     Route: 065
  54. HYDROCORTISONE. [Suspect]
     Active Substance: HYDROCORTISONE
     Indication: URTICARIA CHRONIC
     Dosage: UNK
     Route: 062
  55. HYDROCORTISONE. [Suspect]
     Active Substance: HYDROCORTISONE
     Dosage: UNK
     Route: 062
  56. PARACETAMOL [Suspect]
     Active Substance: ACETAMINOPHEN
     Indication: URTICARIA CHRONIC
     Dosage: UNK
     Route: 065
  57. DIMETINDENE [Suspect]
     Active Substance: DIMETHINDENE
     Dosage: UNK
  58. EBASTINE [Suspect]
     Active Substance: EBASTINE
     Indication: URTICARIA CHRONIC
     Dosage: UNK
     Route: 065
  59. CLEMASTINE [Suspect]
     Active Substance: CLEMASTINE
     Dosage: UNK
     Route: 065
  60. MONTELUKAST [Suspect]
     Active Substance: MONTELUKAST SODIUM
     Indication: ASTHMA
     Dosage: UNK, DPT
     Route: 048
  61. NIMESULIDE [Suspect]
     Active Substance: NIMESULIDE
     Dosage: UNK
  62. OMALIZUMAB. [Suspect]
     Active Substance: OMALIZUMAB
     Dosage: 150 MG
     Route: 065
  63. PREDNISOLONE. [Suspect]
     Active Substance: PREDNISOLONE
     Dosage: UNK
  64. DESLORATADINE. [Suspect]
     Active Substance: DESLORATADINE
     Dosage: UNK, DPT
     Route: 048
  65. LORATADINE. [Suspect]
     Active Substance: LORATADINE
     Indication: ASTHMA
     Dosage: UNK
     Route: 065
  66. ZYRTEC [Suspect]
     Active Substance: CETIRIZINE HYDROCHLORIDE
     Dosage: UNK
     Route: 065
  67. HYDROCORTISONE. [Suspect]
     Active Substance: HYDROCORTISONE
     Dosage: UNK
     Route: 062
  68. HYDROCORTISONE. [Suspect]
     Active Substance: HYDROCORTISONE
     Dosage: UNK
     Route: 062
  69. DEFLAZACORT [Suspect]
     Active Substance: DEFLAZACORT
     Indication: ASTHMA
     Dosage: UNK
     Route: 062
  70. DEXAMETHASONE. [Suspect]
     Active Substance: DEXAMETHASONE
     Indication: ASTHMA
     Dosage: UNK
     Route: 065
  71. CLEMASTINE [Suspect]
     Active Substance: CLEMASTINE
     Indication: URTICARIA CHRONIC
     Dosage: UNK
     Route: 065
  72. CLARITINE [Suspect]
     Active Substance: LORATADINE
     Dosage: UNK, ORODISPERSIBLE TABLET
     Route: 048
  73. CLARITINE [Suspect]
     Active Substance: LORATADINE
     Dosage: 150 MG
     Route: 048
  74. OMALIZUMAB. [Suspect]
     Active Substance: OMALIZUMAB
     Indication: ANGIOEDEMA
     Dosage: 300 MG
     Route: 065

REACTIONS (9)
  - Drug reaction with eosinophilia and systemic symptoms [Unknown]
  - Exposure during pregnancy [Unknown]
  - Maternal exposure during pregnancy [Unknown]
  - Urticaria [Recovering/Resolving]
  - Allergy test positive [Recovering/Resolving]
  - Angioedema [Unknown]
  - Drug hypersensitivity [Recovered/Resolved]
  - Syncope [Unknown]
  - Product use in unapproved indication [Unknown]
